FAERS Safety Report 14616395 (Version 2)
Quarter: 2018Q1

REPORT INFORMATION
  Report Type: Spontaneous
  Country: US (occurrence: US)
  Receive Date: 20180309
  Receipt Date: 20180315
  Transmission Date: 20180509
  Serious: No
  Sender: FDA-Public Use
  Company Number: US-PFIZER INC-2018095736

PATIENT
  Age: 71 Year
  Sex: Female

DRUGS (4)
  1. DOXYCYCLINE HYCLATE. [Suspect]
     Active Substance: DOXYCYCLINE HYCLATE
     Dosage: 100 MG, UNK
     Dates: start: 2017
  2. GUAIFENESIN. [Suspect]
     Active Substance: GUAIFENESIN
     Dosage: UNK
     Dates: start: 2017
  3. OSCILLOCOCCINUM [Suspect]
     Active Substance: CAIRINA MOSCHATA HEART/LIVER AUTOLYSATE
     Dosage: UNK
     Dates: start: 2017
  4. CEPHALEXIN. [Suspect]
     Active Substance: CEPHALEXIN
     Dosage: 500 MG, UNK
     Dates: start: 2017

REACTIONS (1)
  - Drug ineffective [Unknown]
